FAERS Safety Report 7450416-4 (Version None)
Quarter: 2011Q2

REPORT INFORMATION
  Report Type: 
  Country: None (occurrence: None)
  Receive Date: 20110502
  Receipt Date: 20110422
  Transmission Date: 20111010
  Serious: Yes (Hospitalization)
  Sender: FDA-Public Use
  Company Number: FR-AMGEN-FRASP2011022186

PATIENT
  Age: 52 Year
  Sex: Male

DRUGS (4)
  1. HUMIRA [Suspect]
     Indication: SPONDYLITIS
     Dosage: 40 MG, EVERY 2 WEEKS
     Dates: start: 20070101, end: 20080101
  2. PANTOPRAZOLE [Concomitant]
     Indication: PROPHYLAXIS AGAINST GASTROINTESTINAL ULCER
     Dosage: UNK
  3. ENBREL [Suspect]
     Indication: PRODUCT USED FOR UNKNOWN INDICATION
     Dosage: 50 MG, WEEKLY
     Route: 058
     Dates: start: 20081001, end: 20110201
  4. MOBIC [Concomitant]
     Indication: SPONDYLITIS
     Dosage: 15 MG, 2X/DAY
     Route: 048

REACTIONS (1)
  - CARCINOID TUMOUR [None]
